FAERS Safety Report 7421558-4 (Version None)
Quarter: 2011Q2

REPORT INFORMATION
  Report Type: 
  Country: None (occurrence: None)
  Receive Date: 20110418
  Receipt Date: 20110413
  Transmission Date: 20111010
  Serious: Yes (Other)
  Sender: FDA-Public Use
  Company Number: BR-ABBOTT-09P-020-0612183-00

PATIENT
  Sex: Female
  Weight: 69 kg

DRUGS (9)
  1. HUMIRA [Suspect]
     Route: 058
     Dates: start: 20091001
  2. GINKO BILOBA [Concomitant]
     Indication: PHYTOTHERAPY
     Route: 048
  3. HUMIRA [Suspect]
     Indication: RHEUMATOID ARTHRITIS
     Route: 058
     Dates: start: 20060301
  4. FAMOTIDINE/PREDNISONE/NIMESULIDE/CYCLOBENZAPRINE [Concomitant]
     Indication: MUSCULOSKELETAL PAIN
     Dosage: (25MG/2.5MG/100MG/5MG)
     Route: 048
  5. LOSARTAN POTASSIUM [Concomitant]
     Indication: HYPERTENSION
     Route: 048
  6. HYDROCHLOROTHIAZIDE [Concomitant]
     Indication: HYPERTENSION
     Route: 048
  7. CALCIUM [Concomitant]
     Indication: BONE DISORDER
     Route: 048
  8. HUMIRA [Suspect]
     Route: 058
     Dates: end: 20091001
  9. FAMOTIDINE/NIMESULIDE/PREDNISONE/CHLOROQUINE DIPHOSPHATE [Concomitant]
     Indication: MUSCULOSKELETAL PAIN
     Dosage: (25MG/100MG/2.5MG/75MG)
     Route: 048

REACTIONS (17)
  - HYPERTENSIVE CRISIS [None]
  - VOMITING [None]
  - TONGUE DISORDER [None]
  - SYNCOPE [None]
  - COLD SWEAT [None]
  - APPLICATION SITE PRURITUS [None]
  - INJECTION SITE ERYTHEMA [None]
  - HYPOTENSION [None]
  - PAIN [None]
  - INJECTION SITE PAIN [None]
  - INJECTION SITE SWELLING [None]
  - HEADACHE [None]
  - BLINDNESS [None]
  - DEAFNESS [None]
  - APPLICATION SITE ERYTHEMA [None]
  - DIARRHOEA [None]
  - HYPERTENSION [None]
